FAERS Safety Report 12081436 (Version 2)
Quarter: 2016Q2

REPORT INFORMATION
  Report Type: Spontaneous
  Country: US (occurrence: US)
  Receive Date: 20160216
  Receipt Date: 20160510
  Transmission Date: 20160815
  Serious: No
  Sender: FDA-Public Use
  Company Number: US-009507513-1602USA007224

PATIENT
  Sex: Female
  Weight: 115.92 kg

DRUGS (1)
  1. NEXPLANON [Suspect]
     Active Substance: ETONOGESTREL
     Indication: CONTRACEPTION
     Dosage: 68 MG
     Route: 059
     Dates: start: 201302, end: 20160225

REACTIONS (6)
  - Pain in extremity [Unknown]
  - Weight increased [Unknown]
  - Device deployment issue [Recovered/Resolved]
  - Peripheral swelling [Unknown]
  - Mood altered [Unknown]
  - Complication associated with device [Recovered/Resolved]
